FAERS Safety Report 6493032-3 (Version None)
Quarter: 2009Q4

REPORT INFORMATION
  Report Type: 
  Country: None (occurrence: None)
  Receive Date: 20091209
  Receipt Date: 20091125
  Transmission Date: 20100525
  Serious: Yes (Hospitalization)
  Sender: FDA-Public Use
  Company Number: 233527J09USA

PATIENT
  Age: 67 Year
  Sex: Female

DRUGS (2)
  1. REBIF [Suspect]
     Indication: MULTIPLE SCLEROSIS
     Dosage: 44 MCG
     Dates: start: 20090914, end: 20091015
  2. UNSPECIFIED MEDICATIONS (ALL OTHER THERAPEUTIC PRODUCTS) [Concomitant]

REACTIONS (4)
  - COLITIS [None]
  - COLON NEOPLASM [None]
  - INTESTINAL OBSTRUCTION [None]
  - SYNCOPE [None]
